FAERS Safety Report 16920931 (Version 1)
Quarter: 2019Q4

REPORT INFORMATION
  Report Type: Spontaneous
  Country: BR (occurrence: BR)
  Receive Date: 20191015
  Receipt Date: 20191015
  Transmission Date: 20200122
  Serious: Yes (Hospitalization, Other)
  Sender: FDA-Public Use
  Company Number: BR-ABBVIE-19P-020-2964391-00

PATIENT
  Age: 52 Year
  Sex: Male
  Weight: 73.5 kg

DRUGS (5)
  1. NEO FOLICO [Concomitant]
     Indication: ASTHENIA
     Dosage: ADMINISTERED ON WEDNESDAYS
     Route: 048
     Dates: start: 2014
  2. SYNTHROID [Suspect]
     Active Substance: LEVOTHYROXINE SODIUM
     Indication: HORMONE REPLACEMENT THERAPY
     Route: 048
     Dates: start: 2004
  3. TECNOMET [Suspect]
     Active Substance: METHOTREXATE
     Indication: SKIN EXFOLIATION
     Dosage: 3 TABLETS AFTER BREAKFAST, 3 AFTER DINNER, ONCE A WEEK (FRIDAY)
     Route: 048
     Dates: start: 2014
  4. SYNTHROID [Suspect]
     Active Substance: LEVOTHYROXINE SODIUM
     Route: 048
     Dates: start: 201907
  5. SYNTHROID [Suspect]
     Active Substance: LEVOTHYROXINE SODIUM
     Route: 048

REACTIONS (9)
  - Respiration abnormal [Not Recovered/Not Resolved]
  - Postural orthostatic tachycardia syndrome [Unknown]
  - Asthenia [Unknown]
  - Sleep disorder [Unknown]
  - Flushing [Recovering/Resolving]
  - Hyperhidrosis [Unknown]
  - Heart rate increased [Unknown]
  - Tachycardia [Recovered/Resolved]
  - Chest discomfort [Not Recovered/Not Resolved]

NARRATIVE: CASE EVENT DATE: 20190925
